FAERS Safety Report 18972854 (Version 1)
Quarter: 2021Q1

REPORT INFORMATION
  Report Type: Spontaneous
  Country: US (occurrence: US)
  Receive Date: 20210305
  Receipt Date: 20210305
  Transmission Date: 20210420
  Serious: No
  Sender: FDA-Public Use
  Company Number: None

PATIENT
  Age: 77 Year
  Sex: Male
  Weight: 69.75 kg

DRUGS (2)
  1. EQUATE MEDICATED DANDRUFF ANTI?DANDRUFF [Suspect]
     Active Substance: SELENIUM SULFIDE
     Indication: PRURITUS
     Dosage: ?          QUANTITY:1 TEASPOON(S);OTHER FREQUENCY:ONCE A WEEK;?
     Route: 061
     Dates: start: 20200731, end: 20210203
  2. EQUATE COMPLETE MULTI VITAMIN FOR ADULTS 50+ [Concomitant]

REACTIONS (12)
  - Tenderness [None]
  - Drug ineffective [None]
  - Skin fissures [None]
  - Dermatitis contact [None]
  - Pain [None]
  - Skin laceration [None]
  - Impaired healing [None]
  - Bacterial infection [None]
  - Skin irritation [None]
  - Scab [None]
  - Erythema [None]
  - Dermatitis [None]

NARRATIVE: CASE EVENT DATE: 20210203
